FAERS Safety Report 6659746-7 (Version None)
Quarter: 2010Q1

REPORT INFORMATION
  Report Type: 
  Country: None (occurrence: None)
  Receive Date: 20100325
  Receipt Date: 20100311
  Transmission Date: 20100710
  Serious: Yes (Hospitalization)
  Sender: FDA-Public Use
  Company Number: 008580

PATIENT
  Age: 44 Year
  Sex: Male

DRUGS (3)
  1. VIMPAT [Suspect]
     Indication: EPILEPSY
     Dosage: (100 UNSPECIFIED UNITS AS USED; TOTAL DAILY DOSE 200 UNITS UNSPECIFIED ORAL)
     Route: 048
     Dates: start: 20090901
  2. KEPPRA [Concomitant]
  3. TRILEPTAL [Concomitant]

REACTIONS (2)
  - COGNITIVE DISORDER [None]
  - ILLUSION [None]
